FAERS Safety Report 17051390 (Version 1)
Quarter: 2019Q4

REPORT INFORMATION
  Report Type: Report from Study
  Country: JP (occurrence: JP)
  Receive Date: 20191120
  Receipt Date: 20191120
  Transmission Date: 20200122
  Serious: Yes (Hospitalization)
  Sender: FDA-Public Use
  Company Number: JP-CELLTRION INC.-2019JP026527

PATIENT

DRUGS (24)
  1. INFLIXIMAB BS FOR I.V. INFUSION100 MG [NK] [Suspect]
     Active Substance: INFLIXIMAB
     Indication: CROHN^S DISEASE
     Dosage: UNK
     Dates: start: 20151214, end: 20160317
  2. FLAGYL [Concomitant]
     Active Substance: METRONIDAZOLE\METRONIDAZOLE HYDROCHLORIDE
     Indication: CROHN^S DISEASE
     Dosage: UNK
     Dates: start: 20160510, end: 20160517
  3. MESALAZINE [Concomitant]
     Active Substance: MESALAMINE
     Indication: CROHN^S DISEASE
     Dosage: UNK
     Dates: start: 20121004, end: 20160522
  4. OMEPRAZOLE. [Concomitant]
     Active Substance: OMEPRAZOLE
     Indication: PROPHYLAXIS AGAINST GASTROINTESTINAL ULCER
     Dosage: UNK
     Dates: start: 20160523, end: 20160603
  5. ELENTAL [Concomitant]
     Active Substance: AMINO ACIDS\CARBOHYDRATES\MINERALS\SOYBEAN OIL\VITAMINS
     Indication: CROHN^S DISEASE
     Dosage: UNK
     Dates: start: 20120213, end: 20160522
  6. INTRALIPOS [Concomitant]
     Active Substance: SOYBEAN OIL
     Indication: NUTRITIONAL SUPPLEMENTATION
     Dosage: UNK
     Dates: start: 20160605, end: 20160630
  7. GASTER [CROMOGLICATE SODIUM] [Concomitant]
     Indication: PROPHYLAXIS AGAINST GASTROINTESTINAL ULCER
     Dosage: UNK
     Dates: start: 20160604, end: 20160719
  8. FLAVITAN [Concomitant]
     Active Substance: FLAVIN ADENINE DINUCLEOTIDE
     Indication: VITAMIN SUPPLEMENTATION
     Dosage: UNK
     Dates: start: 20160727, end: 20160806
  9. CELECOX [Concomitant]
     Active Substance: CELECOXIB
     Indication: PAIN PROPHYLAXIS
     Dosage: UNK
     Dates: start: 20160730, end: 20160803
  10. INFLIXIMAB BS FOR I.V. INFUSION100 MG [NK] [Suspect]
     Active Substance: INFLIXIMAB
     Dosage: 600 MG, QD
     Route: 041
     Dates: start: 20160513, end: 20160513
  11. VITACIMIN [Concomitant]
     Indication: VITAMIN SUPPLEMENTATION
     Dosage: UNK
     Dates: start: 20160727, end: 20160806
  12. NEXIUM I.V. [Concomitant]
     Active Substance: ESOMEPRAZOLE SODIUM
     Indication: PROPHYLAXIS AGAINST GASTROINTESTINAL ULCER
     Dosage: UNK
     Dates: start: 20160730, end: 20160830
  13. BFLUID [Concomitant]
     Active Substance: AMINO ACIDS\DEXTROSE\ELECTROLYTES NOS\VITAMINS
     Indication: FLUID REPLACEMENT
     Dosage: UNK
     Dates: start: 20170105, end: 20170110
  14. INFLIXIMAB BS FOR I.V. INFUSION100 MG [NK] [Suspect]
     Active Substance: INFLIXIMAB
     Dosage: 320 MG, QD
     Route: 041
     Dates: start: 20161202, end: 20161202
  15. SOLDEM 3A [Concomitant]
     Active Substance: CARBOHYDRATES\POTASSIUM CHLORIDE\SODIUM CHLORIDE\SODIUM LACTATE
     Indication: FLUID REPLACEMENT
     Dosage: UNK
     Dates: start: 20160727, end: 20160729
  16. RHYTHMY [Concomitant]
     Active Substance: RILMAZAFONE HYDROCHLORIDE
     Indication: PROPHYLAXIS
     Dosage: UNK
     Dates: start: 20160728, end: 20160728
  17. DAIKENCHUTO [Concomitant]
     Active Substance: HERBALS
     Indication: CROHN^S DISEASE
     Dosage: UNK
     Dates: start: 20120515, end: 20160522
  18. ELNEOPA NO.2 [Concomitant]
     Active Substance: AMINO ACIDS\DEXTROSE\ELECTROLYTES NOS\MINERALS\VITAMINS
     Indication: CROHN^S DISEASE
     Dosage: UNK
     Dates: start: 20160526, end: 20160716
  19. SOLYUGEN F [Concomitant]
     Active Substance: CALCIUM CHLORIDE\POTASSIUM CHLORIDE\SODIUM ACETATE\SODIUM CHLORIDE
     Indication: FLUID REPLACEMENT
     Dosage: UNK
     Dates: start: 20170105, end: 20170111
  20. VITAMEDIN [CYANOCOBALAMIN;PYRIDOXINE HYDROCHLORIDE;THIAMINE HYDROCHLOR [Concomitant]
     Indication: VITAMIN SUPPLEMENTATION
     Dosage: UNK
     Dates: start: 20160522, end: 20160806
  21. SOLYUGEN G [Concomitant]
     Indication: FLUID REPLACEMENT
     Dosage: UNK
     Dates: start: 20160522, end: 20160522
  22. SOLDEM 3AG [Concomitant]
     Indication: FLUID REPLACEMENT
     Dosage: UNK
     Dates: start: 20160522, end: 20160531
  23. ELNEOPA NO.1 [Concomitant]
     Active Substance: AMINO ACIDS\DEXTROSE\ELECTROLYTES NOS\MINERALS\VITAMINS
     Indication: CROHN^S DISEASE
     Dosage: UNK
     Dates: start: 20160523, end: 20160525
  24. MIYA-BM [Concomitant]
     Active Substance: CLOSTRIDIUM BUTYRICUM SPORES STRAIN M-55
     Indication: GASTROINTESTINAL DISORDER
     Dosage: UNK
     Dates: start: 20160805, end: 20160812

REACTIONS (6)
  - Small intestinal perforation [Recovered/Resolved]
  - Insomnia [Recovered/Resolved]
  - Intestinal obstruction [Recovered/Resolved]
  - Overdose [Unknown]
  - Abdominal abscess [Recovered/Resolved]
  - Pyrexia [Recovered/Resolved]

NARRATIVE: CASE EVENT DATE: 20160522
